FAERS Safety Report 17037755 (Version 2)
Quarter: 2019Q4

REPORT INFORMATION
  Report Type: Spontaneous
  Country: US (occurrence: US)
  Receive Date: 20191115
  Receipt Date: 20191211
  Transmission Date: 20200122
  Serious: Yes (Hospitalization)
  Sender: FDA-Public Use
  Company Number: US-PFIZER INC-2019492059

PATIENT
  Age: 55 Year
  Sex: Male

DRUGS (2)
  1. RAPAMUNE [Suspect]
     Active Substance: SIROLIMUS
     Dosage: 1 MG, UNK
  2. RAPAMUNE [Suspect]
     Active Substance: SIROLIMUS
     Dosage: 3 MG, DAILY
     Route: 048
     Dates: start: 20191113

REACTIONS (1)
  - Gastrointestinal disorder [Unknown]
